FAERS Safety Report 25202602 (Version 1)
Quarter: 2025Q2

REPORT INFORMATION
  Report Type: Spontaneous
  Country: US (occurrence: None)
  Receive Date: 20250415
  Receipt Date: 20250415
  Transmission Date: 20250717
  Serious: Yes (Hospitalization)
  Sender: FDA-CTU
  Company Number: None

PATIENT
  Age: 6 Year
  Sex: Male
  Weight: 21 kg

DRUGS (3)
  1. PULMOZYME [Suspect]
     Active Substance: DORNASE ALFA
     Indication: Cystic fibrosis
     Dosage: OTHER QUANTITY : 1/1MG/ML;?FREQUENCY : DAILY;?
     Route: 055
     Dates: start: 20250320
  2. ENOXAPARIN [Concomitant]
     Active Substance: ENOXAPARIN
  3. TOBI [Concomitant]
     Active Substance: TOBRAMYCIN

REACTIONS (2)
  - Urinary tract infection [None]
  - Pneumonia [None]

NARRATIVE: CASE EVENT DATE: 20250401
